FAERS Safety Report 6878024-4 (Version None)
Quarter: 2010Q3

REPORT INFORMATION
  Report Type: 
  Country: None (occurrence: None)
  Receive Date: 20100727
  Receipt Date: 20100722
  Transmission Date: 20110219
  Serious: Yes (Life-Threatening, Disabling, Other)
  Sender: FDA-Public Use
  Company Number: CA-B.I. PHARMACEUTICALS,INC./RIDGEFIELD-2010-CN-00467CN

PATIENT
  Age: 39 Year
  Sex: Male
  Weight: 88.45 kg

DRUGS (2)
  1. MIRAPEX [Suspect]
     Dosage: 4 MG
     Route: 065
  2. SINEMET CR [Concomitant]
     Route: 065

REACTIONS (14)
  - ABNORMAL BEHAVIOUR [None]
  - ANGER [None]
  - ANTISOCIAL BEHAVIOUR [None]
  - BODY TEMPERATURE INCREASED [None]
  - COMPULSIVE SEXUAL BEHAVIOUR [None]
  - DEPRESSED MOOD [None]
  - FOOD CRAVING [None]
  - IMPAIRED SELF-CARE [None]
  - INSOMNIA [None]
  - MOOD ALTERED [None]
  - PAIN [None]
  - PATHOLOGICAL GAMBLING [None]
  - SEXUAL DYSFUNCTION [None]
  - VISUAL IMPAIRMENT [None]
